FAERS Safety Report 9190762 (Version 1)
Quarter: 2013Q1

REPORT INFORMATION
  Report Type: Report from Study
  Country: DE (occurrence: DE)
  Receive Date: 20130326
  Receipt Date: 20130326
  Transmission Date: 20140127
  Serious: Yes (Other)
  Sender: FDA-Public Use
  Company Number: DE-ROCHE-1206150

PATIENT
  Age: 55 Year
  Sex: Female
  Weight: 112 kg

DRUGS (3)
  1. BEVACIZUMAB [Suspect]
     Indication: OVARIAN CANCER
     Dosage: DATE OF LAST DOSE PRIOR TO THE EVENT 31/JAN/2013, DAILY DOSE 1680 MG ABSOLUT
     Route: 042
     Dates: start: 20120509, end: 20130131
  2. CARBOPLATIN [Suspect]
     Indication: OVARIAN CANCER
     Dosage: DATE OF LAST DOSE PRIOR TO THE EVENT 28/AUG/2012, DAILY DOSE AUC 5, 800 MG ABSOLUT
     Route: 042
     Dates: start: 20120418
  3. PACLITAXEL [Suspect]
     Indication: OVARIAN CANCER
     Dosage: DATE OF LAST DOSE PRIOR TO THE EVENT 26/JUN/2012, DAILY DOSE 350 MG ABSOLUT
     Route: 042
     Dates: start: 20120418

REACTIONS (1)
  - Abdominal hernia [Recovering/Resolving]
